FAERS Safety Report 24586925 (Version 1)
Quarter: 2024Q4

REPORT INFORMATION
  Report Type: Spontaneous
  Country: FR (occurrence: FR)
  Receive Date: 20241107
  Receipt Date: 20241107
  Transmission Date: 20250114
  Serious: Yes (Life-Threatening, Other)
  Sender: AUROBINDO
  Company Number: FR-AFSSAPS-RN2024001153

PATIENT
  Age: 38 Year
  Sex: Male
  Weight: 59 kg

DRUGS (7)
  1. VALPROIC ACID [Suspect]
     Active Substance: VALPROIC ACID
     Indication: Product used for unknown indication
     Dosage: 1 GRAM (2 TABLETS 500 MG)
     Route: 048
     Dates: start: 20240906, end: 20240906
  2. CLOZAPINE [Suspect]
     Active Substance: CLOZAPINE
     Indication: Wrong patient received product
     Dosage: 300 MILLIGRAM (3 TABLETS)
     Route: 048
     Dates: start: 20240906, end: 20240906
  3. MESTINON [Suspect]
     Active Substance: PYRIDOSTIGMINE BROMIDE
     Indication: Wrong patient received product
     Dosage: 60 MILLIGRAM
     Route: 048
     Dates: start: 20240906, end: 20240906
  4. PHENERGAN [Suspect]
     Active Substance: PROMETHAZINE HYDROCHLORIDE
     Indication: Wrong patient received product
     Dosage: 25 MILLIGRAM
     Route: 048
     Dates: start: 20240906, end: 20240906
  5. RISPERDAL [Suspect]
     Active Substance: RISPERIDONE
     Indication: Autism spectrum disorder
     Dosage: 1 DOSAGE FORM
     Route: 048
  6. TRANXENE [Suspect]
     Active Substance: CLORAZEPATE DIPOTASSIUM
     Indication: Anxiety
     Dosage: 3 DOSAGE FORM
     Route: 048
  7. VALIUM [Suspect]
     Active Substance: DIAZEPAM
     Indication: Wrong patient received product
     Dosage: 10 MILLIGRAM
     Route: 048
     Dates: start: 20240906, end: 20240906

REACTIONS (2)
  - Coma [Recovered/Resolved]
  - Wrong patient received product [Recovered/Resolved]

NARRATIVE: CASE EVENT DATE: 20240906
